FAERS Safety Report 10041008 (Version 2)
Quarter: 2014Q1

REPORT INFORMATION
  Report Type: Spontaneous
  Country: CN (occurrence: CN)
  Receive Date: 20140327
  Receipt Date: 20140327
  Transmission Date: 20141002
  Serious: Yes (Other)
  Sender: FDA-Public Use
  Company Number: CN-SA-2014SA024574

PATIENT
  Age: 76 Year
  Sex: Female

DRUGS (11)
  1. AMIODARONE HYDROCHLORIDE [Suspect]
     Indication: ARRHYTHMIA
     Route: 048
  2. AMIODARONE HYDROCHLORIDE [Suspect]
     Indication: VENTRICULAR EXTRASYSTOLES
     Route: 048
  3. OMEPRAZOLE [Suspect]
     Indication: PROPHYLAXIS
     Route: 048
  4. CLOPIDOGREL BISULFATE [Suspect]
     Indication: PROPHYLAXIS
     Route: 048
  5. ASPIRIN [Suspect]
     Indication: PROPHYLAXIS
     Route: 048
  6. HYDROCHLOROTHIAZIDE/IRBESARTAN [Concomitant]
  7. AMLODIPINE BESILATE [Concomitant]
  8. ACARBOSE [Concomitant]
  9. GLICLAZIDE [Concomitant]
     Dosage: MODIFIED-RELEASE TABLET
  10. METFORMIN [Concomitant]
  11. ISOSORBIDE MONONITRATE [Concomitant]
     Dosage: MODIFIED-RELEASE TABLET

REACTIONS (3)
  - Gastric ulcer [Unknown]
  - Abdominal discomfort [Unknown]
  - Sinus bradycardia [Recovering/Resolving]
